FAERS Safety Report 5092969-X (Version None)
Quarter: 2006Q3

REPORT INFORMATION
  Report Type: 
  Country: None (occurrence: None)
  Receive Date: 20060830
  Receipt Date: 20050706
  Transmission Date: 20061208
  Serious: Yes (Life-Threatening, Hospitalization, Other)
  Sender: FDA-Public Use
  Company Number: US-GLAXOSMITHKLINE-A0565186A

PATIENT
  Age: 17 Year
  Sex: Female

DRUGS (2)
  1. COMBIVIR [Suspect]
     Indication: HIV INFECTION
     Dosage: 1TAB TWICE PER DAY
     Route: 048
     Dates: start: 20050305, end: 20050705
  2. SUSTIVA [Concomitant]

REACTIONS (6)
  - APLASTIC ANAEMIA [None]
  - FATIGUE [None]
  - NEUTROPENIA [None]
  - PALLOR [None]
  - PANCYTOPENIA [None]
  - THROMBOCYTOPENIA [None]
